FAERS Safety Report 6525081-0 (Version None)
Quarter: 2010Q1

REPORT INFORMATION
  Report Type: 
  Country: None (occurrence: None)
  Receive Date: 20100104
  Receipt Date: 20091228
  Transmission Date: 20100710
  Serious: Yes (Life-Threatening, Hospitalization)
  Sender: FDA-Public Use
  Company Number: JP-ROCHE-664099

PATIENT
  Sex: Male
  Weight: 63 kg

DRUGS (9)
  1. AVASTIN [Suspect]
     Indication: RECTAL CANCER METASTATIC
     Route: 041
     Dates: start: 20090421, end: 20090421
  2. AVASTIN [Suspect]
     Route: 041
     Dates: start: 20090514, end: 20090514
  3. AVASTIN [Suspect]
     Route: 041
     Dates: start: 20090528, end: 20090528
  4. AVASTIN [Suspect]
     Route: 041
     Dates: start: 20090611, end: 20090611
  5. AVASTIN [Suspect]
     Route: 041
     Dates: start: 20090625, end: 20090625
  6. ELPLAT [Suspect]
     Indication: RECTAL CANCER METASTATIC
     Route: 041
     Dates: start: 20090421, end: 20090709
  7. FLUOROURACIL [Suspect]
     Indication: RECTAL CANCER METASTATIC
     Route: 041
     Dates: start: 20090421, end: 20090701
  8. LEVOFOLINATE [Suspect]
     Indication: RECTAL CANCER METASTATIC
     Route: 041
     Dates: start: 20090421, end: 20090709
  9. FLUOROURACIL [Suspect]
     Route: 040
     Dates: start: 20090421, end: 20090709

REACTIONS (6)
  - ARTERIAL HAEMORRHAGE [None]
  - CARDIAC ARREST [None]
  - DECREASED APPETITE [None]
  - DIARRHOEA [None]
  - DUODENAL ULCER PERFORATION [None]
  - SHOCK HAEMORRHAGIC [None]
